FAERS Safety Report 17810115 (Version 1)
Quarter: 2020Q2

REPORT INFORMATION
  Report Type: Spontaneous
  Country: PT (occurrence: PT)
  Receive Date: 20200520
  Receipt Date: 20200520
  Transmission Date: 20200714
  Serious: Yes (Hospitalization, Other)
  Sender: FDA-Public Use
  Company Number: PT-MALLINCKRODT-T202002207

PATIENT
  Age: 12 Year
  Sex: Male

DRUGS (6)
  1. OFIRMEV [Suspect]
     Active Substance: ACETAMINOPHEN
     Indication: HEADACHE
     Dosage: 500 MILLIGRAM, QD
     Route: 042
  2. METOCLOPRAMIDE. [Suspect]
     Active Substance: METOCLOPRAMIDE
     Indication: PYREXIA
  3. OFIRMEV [Suspect]
     Active Substance: ACETAMINOPHEN
     Indication: VOMITING
  4. METOCLOPRAMIDE. [Suspect]
     Active Substance: METOCLOPRAMIDE
     Indication: HEADACHE
  5. OFIRMEV [Suspect]
     Active Substance: ACETAMINOPHEN
     Indication: PYREXIA
  6. METOCLOPRAMIDE. [Suspect]
     Active Substance: METOCLOPRAMIDE
     Indication: VOMITING
     Dosage: 5 MILLIGRAM, QD
     Route: 042

REACTIONS (9)
  - Leukocytosis [Unknown]
  - Dystonia [Unknown]
  - Anxiety [Recovered/Resolved]
  - Headache [Recovered/Resolved]
  - Psychomotor hyperactivity [Recovered/Resolved]
  - Extrapyramidal disorder [Recovered/Resolved]
  - Post-traumatic neck syndrome [Unknown]
  - Drug ineffective [Unknown]
  - Discomfort [Recovered/Resolved]

NARRATIVE: CASE EVENT DATE: 20180613
